FAERS Safety Report 18654086 (Version 1)
Quarter: 2020Q4

REPORT INFORMATION
  Report Type: Spontaneous
  Country: US (occurrence: US)
  Receive Date: 20201222
  Receipt Date: 20201222
  Transmission Date: 20210114
  Serious: No
  Sender: FDA-Public Use
  Company Number: None

PATIENT
  Sex: Female

DRUGS (4)
  1. AMOX/K CLAV [Concomitant]
     Active Substance: AMOXICILLIN\CLAVULANATE POTASSIUM
  2. BOTOX [Suspect]
     Active Substance: ONABOTULINUMTOXINA
     Indication: ACUTE KIDNEY INJURY
     Dosage: ?          OTHER FREQUENCY:Q4-6M;?
     Route: 043
     Dates: start: 20200826
  3. CEFADROXIL. [Concomitant]
     Active Substance: CEFADROXIL
  4. VENLAFAXINE [Concomitant]
     Active Substance: VENLAFAXINE HYDROCHLORIDE

REACTIONS (2)
  - Pregnancy [None]
  - Exposure during pregnancy [None]
